FAERS Safety Report 21786522 (Version 1)
Quarter: 2022Q4

REPORT INFORMATION
  Report Type: Report from Study
  Country: DK (occurrence: None)
  Receive Date: 20221228
  Receipt Date: 20221228
  Transmission Date: 20230113
  Serious: Yes (Hospitalization)
  Sender: FDA-Public Use
  Company Number: DK-ROCHE-2062927

PATIENT
  Age: 52 Year
  Sex: Female

DRUGS (16)
  1. PIRFENIDONE [Suspect]
     Active Substance: PIRFENIDONE
     Indication: Bronchiolitis obliterans syndrome
     Route: 048
     Dates: start: 20171211
  2. AZITHROMYCIN [Concomitant]
     Active Substance: AZITHROMYCIN
  3. VALGANCICLOVIR [Concomitant]
     Active Substance: VALGANCICLOVIR
  4. PANTOPRAZOLE SODIUM [Concomitant]
     Active Substance: PANTOPRAZOLE SODIUM
  5. PRAVASTATIN [Concomitant]
     Active Substance: PRAVASTATIN
  6. BENDROFLUMETHIAZID [Concomitant]
  7. TACROLIMUS [Concomitant]
     Active Substance: TACROLIMUS
  8. PREDNISOLONE [Concomitant]
     Active Substance: PREDNISOLONE
  9. WARFARIN [Concomitant]
     Active Substance: WARFARIN
  10. ALENDRONATE [Concomitant]
     Active Substance: ALENDRONATE SODIUM
  11. CHOLESTYRAMINE [Concomitant]
     Active Substance: CHOLESTYRAMINE
  12. METOCLOPRAMIDE [Concomitant]
     Active Substance: METOCLOPRAMIDE
  13. SULFAMETHOXAZOLE [Concomitant]
     Active Substance: SULFAMETHOXAZOLE
  14. TRIMETHOPRIM [Concomitant]
     Active Substance: TRIMETHOPRIM
  15. ACETAMINOPHEN [Concomitant]
     Active Substance: ACETAMINOPHEN
  16. MYCOPHENOLIC ACID [Concomitant]
     Active Substance: MYCOPHENOLIC ACID

REACTIONS (1)
  - International normalised ratio increased [Unknown]

NARRATIVE: CASE EVENT DATE: 20171218
